FAERS Safety Report 24155060 (Version 1)
Quarter: 2024Q3

REPORT INFORMATION
  Report Type: Report from Study
  Country: US (occurrence: US)
  Receive Date: 20240731
  Receipt Date: 20240731
  Transmission Date: 20241017
  Serious: Yes (Hospitalization)
  Sender: AMNEAL
  Company Number: US-AMNEAL PHARMACEUTICALS-2024-AMRX-02769

PATIENT
  Sex: Female
  Weight: 65 kg

DRUGS (1)
  1. OPICAPONE [Suspect]
     Active Substance: OPICAPONE
     Indication: Parkinson^s disease
     Dosage: 1 CAPSULES, BEDTIME (QHS)
     Route: 048

REACTIONS (4)
  - Hospitalisation [Recovered/Resolved]
  - Bradykinesia [Unknown]
  - Confusional state [Unknown]
  - Underdose [Unknown]
